FAERS Safety Report 10554578 (Version 1)
Quarter: 2014Q4

REPORT INFORMATION
  Report Type: Spontaneous
  Country: US (occurrence: None)
  Receive Date: 20141029
  Receipt Date: 20141029
  Transmission Date: 20150529
  Serious: Yes (Life-Threatening, Hospitalization)
  Sender: FDA-Public Use
  Company Number: None

PATIENT
  Age: 56 Year
  Sex: Female
  Weight: 72.58 kg

DRUGS (1)
  1. DESVENLAFAXINE. [Suspect]
     Active Substance: DESVENLAFAXINE
     Indication: DEPRESSION
     Route: 048
     Dates: start: 20140912, end: 20141012

REACTIONS (3)
  - Malaise [None]
  - Feelings of worthlessness [None]
  - Suicidal ideation [None]

NARRATIVE: CASE EVENT DATE: 20141020
